FAERS Safety Report 19204966 (Version 2)
Quarter: 2021Q2

REPORT INFORMATION
  Report Type: Report from Study
  Country: US (occurrence: US)
  Receive Date: 20210503
  Receipt Date: 20210507
  Transmission Date: 20210717
  Serious: Yes (Death)
  Sender: FDA-Public Use
  Company Number: US-PFIZER INC-2021486033

PATIENT

DRUGS (2)
  1. COPANLISIB. [Suspect]
     Active Substance: COPANLISIB
     Indication: NON-HODGKIN^S LYMPHOMA
     Dosage: 60 MG, 1?H INTRAVENOUS INFUSION ON AN INTERMITTENT SCHEDULE ON DAYS 1, 8, AND 15 [28?DAY CYCLE]
     Route: 042
  2. RITUXIMAB. [Suspect]
     Active Substance: RITUXIMAB
     Indication: NON-HODGKIN^S LYMPHOMA
     Dosage: 375 MG/M2, WEEKLY ON DAYS 1, 8, 15, AND 22 DURING CYCLE 1 AND DAY 1 OF CYCLES 3, 5, 7, AND 9
     Route: 042

REACTIONS (1)
  - Pneumonitis [Fatal]
